FAERS Safety Report 13216322 (Version 1)
Quarter: 2017Q1

REPORT INFORMATION
  Report Type: Other
  Country: US (occurrence: US)
  Receive Date: 20170210
  Receipt Date: 20170210
  Transmission Date: 20170428
  Serious: No
  Sender: FDA-Public Use
  Company Number: US-ACORDA-ACO_123569_2016

PATIENT
  Age: 56 Year
  Sex: Female
  Weight: 105.67 kg

DRUGS (2)
  1. AMPYRA [Suspect]
     Active Substance: DALFAMPRIDINE
     Indication: MULTIPLE SCLEROSIS
     Dosage: 10 MG, BID
     Route: 048
     Dates: start: 201507, end: 201512
  2. AUBAGIO [Concomitant]
     Active Substance: TERIFLUNOMIDE
     Indication: PRODUCT USED FOR UNKNOWN INDICATION
     Route: 065

REACTIONS (9)
  - Dizziness [Recovering/Resolving]
  - Influenza [Recovering/Resolving]
  - Muscle spasms [Recovering/Resolving]
  - Poor quality sleep [Recovering/Resolving]
  - Abasia [Recovering/Resolving]
  - Cold sweat [Recovering/Resolving]
  - Food poisoning [Recovered/Resolved]
  - Muscular weakness [Recovering/Resolving]
  - Disturbance in attention [Recovering/Resolving]

NARRATIVE: CASE EVENT DATE: 20160421
